FAERS Safety Report 7658118-6 (Version None)
Quarter: 2011Q3

REPORT INFORMATION
  Report Type: 
  Country: None (occurrence: None)
  Receive Date: 20110802
  Receipt Date: 20110718
  Transmission Date: 20111222
  Serious: Yes (Other)
  Sender: FDA-Public Use
  Company Number: 2011MA009002

PATIENT
  Age: 54 Year
  Sex: Female

DRUGS (2)
  1. TRIAMCINOLONE ACETONIDE [Suspect]
     Indication: MACULAR OEDEMA
     Dosage: 4 MG/0.1 ML;
  2. TRIAMCINOLONE ACETONIDE [Suspect]
     Indication: RETINAL VEIN OCCLUSION
     Dosage: 4 MG/0.1 ML;

REACTIONS (2)
  - POST PROCEDURAL COMPLICATION [None]
  - OCULAR HYPERTENSION [None]
